FAERS Safety Report 7392390-5 (Version None)
Quarter: 2011Q2

REPORT INFORMATION
  Report Type: 
  Country: None (occurrence: None)
  Receive Date: 20110404
  Receipt Date: 20110322
  Transmission Date: 20111010
  Serious: Yes (Hospitalization)
  Sender: FDA-Public Use
  Company Number: US-ELI_LILLY_AND_COMPANY-US201102004931

PATIENT
  Sex: Female

DRUGS (6)
  1. PROTONIX [Concomitant]
  2. VITAMIN D [Concomitant]
     Dosage: 400 IU, BID
     Route: 065
  3. HYDROCHLOROTHIAZIDE [Concomitant]
     Dosage: 12.5 MG, UNKNOWN
     Route: 065
  4. FORTEO [Suspect]
     Dosage: 20 UG, DAILY (1/D)
     Dates: start: 20110214
  5. RAMIPRIL [Concomitant]
  6. FORTEO [Suspect]
     Indication: OSTEOPOROSIS
     Dosage: 20 UG, DAILY (1/D)
     Dates: end: 20110212

REACTIONS (10)
  - EJECTION FRACTION DECREASED [None]
  - TRICUSPID VALVE STENOSIS [None]
  - LEFT ATRIAL DILATATION [None]
  - LEFT VENTRICULAR HYPERTROPHY [None]
  - TRANSIENT ISCHAEMIC ATTACK [None]
  - AORTIC ARTERIOSCLEROSIS [None]
  - MUSCLE SPASMS [None]
  - FATIGUE [None]
  - MITRAL VALVE INCOMPETENCE [None]
  - MITRAL VALVE CALCIFICATION [None]
